FAERS Safety Report 5702507-3 (Version None)
Quarter: 2008Q2

REPORT INFORMATION
  Report Type: 
  Country: None (occurrence: None)
  Receive Date: 20080411
  Receipt Date: 20080402
  Transmission Date: 20081010
  Serious: Yes (Hospitalization)
  Sender: FDA-Public Use
  Company Number: SE-JNJFOC-20080401560

PATIENT
  Age: 76 Year
  Sex: Female

DRUGS (13)
  1. REMICADE [Suspect]
     Indication: RHEUMATOID ARTHRITIS
     Route: 042
  2. ASPIRIN [Concomitant]
  3. CELEBRA [Concomitant]
  4. ALENAT [Concomitant]
  5. ACETAMINOPHEN [Concomitant]
  6. KALCIPOS-D [Concomitant]
  7. CARDIZEM LA [Concomitant]
  8. ZOLPIDEM TARTRATE [Concomitant]
  9. BEHEPAN [Concomitant]
  10. DUROFERON [Concomitant]
     Dosage: 2X/DAY X 6 WEEKS
  11. OMEPRAZOLE [Concomitant]
  12. FOLACIN [Concomitant]
  13. MYCOSTATIN [Concomitant]

REACTIONS (1)
  - B-CELL LYMPHOMA [None]
